FAERS Safety Report 10200001 (Version 1)
Quarter: 2014Q2

REPORT INFORMATION
  Report Type: Spontaneous
  Country: US (occurrence: US)
  Receive Date: 20140527
  Receipt Date: 20140527
  Transmission Date: 20141212
  Serious: Yes (Hospitalization, Other)
  Sender: FDA-Public Use
  Company Number: US-GILEAD-2014-0103199

PATIENT
  Age: 45 Year
  Sex: Male
  Weight: 89.8 kg

DRUGS (10)
  1. SOVALDI [Suspect]
     Indication: HEPATITIS C
     Dosage: 400 MG, QD
     Route: 065
  2. RIBAPAK [Suspect]
     Indication: HEPATITIS C
     Dosage: 400MG IN MORNING, 600MG AT BEDTIME
     Route: 065
  3. PEGINTRON /01543001/ [Suspect]
     Indication: HEPATITIS C
     Dosage: 150 MCG/QW
     Route: 058
  4. COZAAR [Concomitant]
  5. NORVASC [Concomitant]
  6. ELAVIL                             /00002202/ [Concomitant]
  7. HYDROCHLOROTHIAZIDE [Concomitant]
  8. PRILOSEC                           /00661201/ [Concomitant]
  9. ZOFRAN                             /00955301/ [Concomitant]
  10. TRAMADOL [Concomitant]

REACTIONS (4)
  - Colitis ischaemic [Unknown]
  - Rectal haemorrhage [Unknown]
  - Constipation [None]
  - Pyrexia [Unknown]
